FAERS Safety Report 8906666 (Version 1)
Quarter: 2012Q4

REPORT INFORMATION
  Report Type: 
  Country: US (occurrence: US)
  Receive Date: 20121114
  Receipt Date: 20121114
  Transmission Date: 20130627
  Serious: Yes (Death, Life-Threatening, Hospitalization, Disabling, Other)
  Sender: FDA-Public Use
  Company Number: US-ELI_LILLY_AND_COMPANY-US201211003267

PATIENT
  Sex: Female

DRUGS (3)
  1. HUMULIN REGULAR [Suspect]
     Indication: DIABETES MELLITUS
     Dosage: UNK, unknown
     Dates: start: 2004
  2. HUMULIN REGULAR [Suspect]
     Dosage: UNK, unknown
  3. GLIPIRIDE [Concomitant]

REACTIONS (5)
  - Gastrointestinal gangrene [Fatal]
  - Intestinal obstruction [Not Recovered/Not Resolved]
  - Renal failure [Not Recovered/Not Resolved]
  - Abasia [Not Recovered/Not Resolved]
  - Nodule [Unknown]
